FAERS Safety Report 14490138 (Version 4)
Quarter: 2019Q1

REPORT INFORMATION
  Report Type: Report from Study
  Country: US (occurrence: US)
  Receive Date: 20180206
  Receipt Date: 20190330
  Transmission Date: 20190417
  Serious: Yes (Other)
  Sender: FDA-Public Use
  Company Number: US-ROCHE-2062851

PATIENT
  Age: 61 Year
  Sex: Female
  Weight: 56.75 kg

DRUGS (5)
  1. OCREVUS [Suspect]
     Active Substance: OCRELIZUMAB
     Indication: RELAPSING-REMITTING MULTIPLE SCLEROSIS
     Dosage: DAY 1 AND DAY 15 THEN 600 MG ONCE IN 6 MONTHS
     Route: 042
  2. OCREVUS [Suspect]
     Active Substance: OCRELIZUMAB
     Route: 042
     Dates: start: 20171222
  3. XANAX [Concomitant]
     Active Substance: ALPRAZOLAM
     Indication: POST-TRAUMATIC STRESS DISORDER
  4. XANAX [Concomitant]
     Active Substance: ALPRAZOLAM
     Indication: ANXIETY
     Dosage: AS NEEDED
     Route: 065
  5. CODEINE [Concomitant]
     Active Substance: CODEINE
     Indication: HEADACHE
     Route: 065

REACTIONS (23)
  - Eye injury [Unknown]
  - Malaise [Recovering/Resolving]
  - Gait disturbance [Recovering/Resolving]
  - Pain [Not Recovered/Not Resolved]
  - Bone contusion [Recovered/Resolved]
  - Mass [Unknown]
  - Fatigue [Recovering/Resolving]
  - Eye disorder [Recovered/Resolved]
  - Seizure [Unknown]
  - Impaired driving ability [Unknown]
  - Fall [Unknown]
  - Pyrexia [Unknown]
  - Pain [Recovered/Resolved]
  - Immunosuppression [Unknown]
  - Oral herpes [Not Recovered/Not Resolved]
  - Influenza [Unknown]
  - Oral pruritus [Recovered/Resolved]
  - Tremor [Recovered/Resolved]
  - Gastric disorder [Not Recovered/Not Resolved]
  - Wheezing [Recovered/Resolved]
  - Back disorder [Recovered/Resolved]
  - Blood pressure increased [Recovered/Resolved]
  - Body temperature increased [Unknown]

NARRATIVE: CASE EVENT DATE: 20171226
